FAERS Safety Report 22298651 (Version 2)
Quarter: 2023Q2

REPORT INFORMATION
  Report Type: Report from Study
  Country: BR (occurrence: BR)
  Receive Date: 20230509
  Receipt Date: 20230512
  Transmission Date: 20230722
  Serious: Yes (Other)
  Sender: FDA-Public Use
  Company Number: BR-TAKEDA-BR202016225

PATIENT
  Sex: Male
  Weight: 29 kg

DRUGS (1)
  1. IDURSULFASE [Suspect]
     Active Substance: IDURSULFASE
     Indication: Mucopolysaccharidosis II
     Dosage: 4 DOSAGE FORM, 1/WEEK
     Route: 042

REACTIONS (6)
  - General physical health deterioration [Unknown]
  - Disease progression [Unknown]
  - Sleep disorder [Unknown]
  - Product supply issue [Unknown]
  - Off label use [Recovering/Resolving]
  - Product use issue [Unknown]
